FAERS Safety Report 5390953-X (Version None)
Quarter: 2007Q3

REPORT INFORMATION
  Report Type: 
  Country: None (occurrence: None)
  Receive Date: 20070716
  Receipt Date: 20060816
  Transmission Date: 20080115
  Serious: Yes (Hospitalization)
  Sender: FDA-Public Use
  Company Number: MPS1-10584

PATIENT
  Age: 12 Year
  Sex: Female
  Weight: 16.6 kg

DRUGS (1)
  1. ALDURAZYME [Suspect]
     Indication: MUCOPOLYSACCHARIDOSIS I
     Dosage: 8.7 MG QWK IV
     Route: 042
     Dates: start: 20040609

REACTIONS (1)
  - PNEUMONIA [None]
